FAERS Safety Report 24390243 (Version 6)
Quarter: 2024Q4

REPORT INFORMATION
  Report Type: Spontaneous
  Country: FR (occurrence: FR)
  Receive Date: 20241003
  Receipt Date: 20241025
  Transmission Date: 20250114
  Serious: Yes (Hospitalization)
  Sender: TEVA
  Company Number: None

PATIENT
  Age: 11 Year
  Sex: Female
  Weight: 26.4 kg

DRUGS (20)
  1. AMLODIPINE [Suspect]
     Active Substance: AMLODIPINE BESYLATE
     Indication: Hypertension
     Dosage: NR
     Route: 048
  2. BACTRIM [Suspect]
     Active Substance: SULFAMETHOXAZOLE\TRIMETHOPRIM
     Indication: Antibiotic prophylaxis
     Dosage: 600 MG 3 TIMES A WEEK
     Route: 065
  3. CELLCEPT [Suspect]
     Active Substance: MYCOPHENOLATE MOFETIL
     Indication: Prophylaxis against graft versus host disease
     Dosage: 30 MG/KG/DAY, DECREASING FROM 07/23
     Route: 042
     Dates: start: 20240528, end: 20240730
  4. MICAFUNGIN [Suspect]
     Active Substance: MICAFUNGIN SODIUM
     Indication: Antibiotic prophylaxis
     Dosage: 100 MG 2 TIMES A WEEK
     Route: 065
  5. ONDANSETRON [Suspect]
     Active Substance: ONDANSETRON
     Indication: Vomiting
     Dosage: NR
     Route: 042
  6. DOLIPRANE [Suspect]
     Active Substance: ACETAMINOPHEN
     Indication: Pain
     Dosage: NR
     Route: 048
  7. LANSOPRAZOLE [Suspect]
     Active Substance: LANSOPRAZOLE
     Indication: Gastric ulcer
     Dosage: 15 MG 2 TIMES DAILY
     Route: 048
  8. URSODIOL [Suspect]
     Active Substance: URSODIOL
     Indication: Venoocclusive disease
     Dosage: 300 MILLIGRAM, QD
     Route: 048
     Dates: start: 20240705
  9. CYCLOSPORINE [Suspect]
     Active Substance: CYCLOSPORINE
     Indication: Prophylaxis against graft versus host disease
     Route: 042
     Dates: start: 20240528
  10. VITAMIN K [Concomitant]
     Active Substance: PHYTONADIONE
     Indication: Product used for unknown indication
     Dosage: 10 MILLIGRAM, 1/WEEK
     Route: 065
  11. URSODIOL [Suspect]
     Active Substance: URSODIOL
     Indication: Venoocclusive disease
     Dosage: 150 MG 2 TIMES DAILY
     Route: 048
     Dates: end: 20240705
  12. NUBAIN [Concomitant]
     Active Substance: NALBUPHINE HYDROCHLORIDE
     Indication: Product used for unknown indication
     Dosage: UNK, QID
     Route: 065
  13. CHLORPROMAZINE [Concomitant]
     Active Substance: CHLORPROMAZINE
     Indication: Product used for unknown indication
     Dosage: 7 MILLIGRAM, Q8HR
     Route: 065
  14. CIDOFOVIR [Suspect]
     Active Substance: CIDOFOVIR
     Indication: Adenovirus infection
     Dosage: UNK, Q3WEEKS
     Route: 042
     Dates: start: 20240621
  15. CIDOFOVIR [Suspect]
     Active Substance: CIDOFOVIR
     Indication: Adenovirus infection
     Dosage: UNK
     Route: 042
     Dates: start: 20240710
  16. CIDOFOVIR [Suspect]
     Active Substance: CIDOFOVIR
     Indication: Adenovirus infection
     Dosage: UNK
     Route: 042
     Dates: start: 20240726
  17. Spasfon [Concomitant]
     Indication: Product used for unknown indication
     Dosage: TIME INTERVAL: 0.33333333 DAYS: 40 MILLIGRAM, TID
     Route: 065
  18. ACYCLOVIR [Concomitant]
     Active Substance: ACYCLOVIR
     Indication: Product used for unknown indication
     Dosage: 250 MILLIGRAM, BID
     Route: 065
  19. AMITRIPTYLINE [Concomitant]
     Active Substance: AMITRIPTYLINE
     Indication: Product used for unknown indication
     Dosage: 15 MILLIGRAM
     Route: 065
  20. ACUPAN [Concomitant]
     Active Substance: NEFOPAM HYDROCHLORIDE
     Indication: Product used for unknown indication
     Dosage: 7 MILLIGRAM, QID
     Route: 065

REACTIONS (2)
  - Pancreatitis acute [Recovered/Resolved]
  - Product use in unapproved indication [Recovered/Resolved]

NARRATIVE: CASE EVENT DATE: 20240710
